FAERS Safety Report 7190334-2 (Version None)
Quarter: 2010Q4

REPORT INFORMATION
  Report Type: 
  Country: None (occurrence: None)
  Receive Date: 20101223
  Receipt Date: 20101210
  Transmission Date: 20110411
  Serious: Yes (Hospitalization)
  Sender: FDA-Public Use
  Company Number: US-CELGENEUS-163-21880-10112656

PATIENT
  Sex: Female

DRUGS (3)
  1. REVLIMID [Suspect]
     Route: 048
     Dates: start: 20101030, end: 20101116
  2. REVLIMID [Suspect]
     Indication: POEMS SYNDROME
  3. REVLIMID [Suspect]
     Indication: MULTIPLE MYELOMA

REACTIONS (5)
  - CLOSTRIDIAL INFECTION [None]
  - DEHYDRATION [None]
  - MALAISE [None]
  - METABOLIC ACIDOSIS [None]
  - RENAL FAILURE ACUTE [None]
